FAERS Safety Report 7954774-3 (Version None)
Quarter: 2011Q4

REPORT INFORMATION
  Report Type: 
  Country: None (occurrence: None)
  Receive Date: 20111202
  Receipt Date: 20111013
  Transmission Date: 20120403
  Serious: Yes (Hospitalization)
  Sender: FDA-Public Use
  Company Number: CA-ROCHE-795398

PATIENT
  Sex: Male
  Weight: 77 kg

DRUGS (11)
  1. LIPITOR [Concomitant]
  2. PERINDOPRIL ERBUMINE [Concomitant]
  3. XELODA [Suspect]
     Indication: COLORECTAL CANCER METASTATIC
     Dosage: FREQUENCY: DAY 2-15 EVERY 21 DAYS
     Route: 048
     Dates: start: 20110728, end: 20110806
  4. OXALIPLATIN [Suspect]
     Indication: COLORECTAL CANCER METASTATIC
     Dosage: FREQUENCY: ON DAY 2 EVERY 21 DAYS
     Route: 042
     Dates: start: 20110727, end: 20110727
  5. FOLIC ACID [Concomitant]
  6. INDAPAMIDE [Concomitant]
  7. ACEBUTOLOL [Concomitant]
  8. AVASTIN [Suspect]
     Indication: COLORECTAL CANCER METASTATIC
     Dosage: FREQUENCY: ON DAY 1 EVERY 21 DAYS
     Route: 042
     Dates: start: 20110727, end: 20110727
  9. IRINOTECAN HYDROCHLORIDE [Suspect]
     Indication: COLORECTAL CANCER METASTATIC
     Dosage: FREQUENCY: ON DAY 1 EVERY 21 DAYS
     Route: 042
     Dates: start: 20110727, end: 20110727
  10. ASPIRIN [Concomitant]
  11. CHLORHEXIDINE GLUCONATE [Concomitant]

REACTIONS (1)
  - COLITIS [None]
